FAERS Safety Report 13417618 (Version 1)
Quarter: 2017Q2

REPORT INFORMATION
  Report Type: Spontaneous
  Country: US (occurrence: US)
  Receive Date: 20170406
  Receipt Date: 20170406
  Transmission Date: 20170830
  Serious: Yes (Hospitalization)
  Sender: FDA-Public Use
  Company Number: US-LUNDBECK-DKLU2028843

PATIENT
  Age: 10 Month
  Sex: Female

DRUGS (4)
  1. ONFI [Suspect]
     Active Substance: CLOBAZAM
     Indication: PARTIAL SEIZURES
  2. ONFI [Suspect]
     Active Substance: CLOBAZAM
     Indication: EPILEPSY
  3. ONFI [Suspect]
     Active Substance: CLOBAZAM
     Indication: LENNOX-GASTAUT SYNDROME
     Route: 048
     Dates: start: 201701, end: 20170326
  4. ONFI [Suspect]
     Active Substance: CLOBAZAM
     Indication: EPILEPSY

REACTIONS (1)
  - Sedation [Unknown]

NARRATIVE: CASE EVENT DATE: 201703
